FAERS Safety Report 9846091 (Version 1)
Quarter: 2013Q4

REPORT INFORMATION
  Report Type: Spontaneous
  Country: US (occurrence: None)
  Receive Date: 20131223
  Receipt Date: 20131223
  Transmission Date: 20140711
  Serious: Yes (Other)
  Sender: FDA-Public Use
  Company Number: SYM-2013-10753

PATIENT
  Age: 52 Year
  Sex: 0

DRUGS (2)
  1. TETRABENAZINE [Suspect]
     Indication: HUNTINGTON^S DISEASE
  2. FLUOXETINE(FLUOXETINE(FLUOXETINE) [Concomitant]

REACTIONS (2)
  - Suicidal ideation [None]
  - Depression [None]
